FAERS Safety Report 21972983 (Version 1)
Quarter: 2023Q1

REPORT INFORMATION
  Report Type: Report from Study
  Country: US (occurrence: US)
  Receive Date: 20230209
  Receipt Date: 20230209
  Transmission Date: 20230417
  Serious: Yes (Death, Other)
  Sender: FDA-Public Use
  Company Number: US-PFIZER INC-2021620660

PATIENT
  Age: 60 Year
  Sex: Female

DRUGS (4)
  1. IBRANCE [Suspect]
     Active Substance: PALBOCICLIB
     Indication: Breast cancer female
     Dosage: 125 MG, CYCLIC (DAILY, 21 DAYS ON AND 7 DAYS OFF)
     Route: 048
     Dates: start: 20210524
  2. EXEMESTANE [Concomitant]
     Active Substance: EXEMESTANE
     Dosage: UNK
  3. FEMARA [Concomitant]
     Active Substance: LETROZOLE
     Dosage: UNK
     Route: 048
  4. MELOXICAM [Concomitant]
     Active Substance: MELOXICAM
     Indication: Arthralgia
     Dosage: UNK

REACTIONS (21)
  - Death [Fatal]
  - Cellulitis [Recovering/Resolving]
  - White blood cell count decreased [Unknown]
  - Nasopharyngitis [Unknown]
  - Muscle spasms [Unknown]
  - Arthralgia [Unknown]
  - Hypoaesthesia [Not Recovered/Not Resolved]
  - Peripheral swelling [Not Recovered/Not Resolved]
  - Abdominal pain [Recovering/Resolving]
  - Faeces soft [Unknown]
  - Pain in extremity [Not Recovered/Not Resolved]
  - Condition aggravated [Not Recovered/Not Resolved]
  - Gait disturbance [Unknown]
  - Erythema [Not Recovered/Not Resolved]
  - Condition aggravated [Not Recovered/Not Resolved]
  - Throat tightness [Unknown]
  - Seasonal allergy [Unknown]
  - Sinus congestion [Unknown]
  - Headache [Not Recovered/Not Resolved]
  - Insomnia [Recovering/Resolving]
  - Oedema [Unknown]

NARRATIVE: CASE EVENT DATE: 20210101
